FAERS Safety Report 5847501-7 (Version None)
Quarter: 2008Q3

REPORT INFORMATION
  Report Type: 
  Country: None (occurrence: None)
  Receive Date: 20080814
  Receipt Date: 20080728
  Transmission Date: 20090109
  Serious: No
  Sender: FDA-Public Use
  Company Number: 8034013

PATIENT
  Age: 8 Year
  Sex: Male
  Weight: 36.36 kg

DRUGS (2)
  1. METADATE CD [Suspect]
     Indication: ATTENTION DEFICIT/HYPERACTIVITY DISORDER
     Dosage: 30 MG/D PO; 20 MG/D PO
     Route: 048
     Dates: start: 20060101, end: 20080622
  2. METADATE CD [Suspect]
     Indication: ATTENTION DEFICIT/HYPERACTIVITY DISORDER
     Dosage: 30 MG/D PO; 20 MG/D PO
     Route: 048
     Dates: start: 20080619, end: 20080623

REACTIONS (3)
  - DRUG INTERACTION [None]
  - STRABISMUS [None]
  - TIC [None]
